FAERS Safety Report 8814988 (Version 3)
Quarter: 2012Q4

REPORT INFORMATION
  Report Type: Report from Study
  Country: PL (occurrence: PL)
  Receive Date: 20120928
  Receipt Date: 20121017
  Transmission Date: 20130627
  Serious: Yes (Hospitalization, Other)
  Sender: FDA-Public Use
  Company Number: PHHO2012PL013931

PATIENT
  Age: 77 Year
  Sex: Male
  Weight: 74.5 kg

DRUGS (3)
  1. ALISKIREN [Suspect]
     Indication: CARDIAC FAILURE
     Dosage: UNK
     Route: 048
     Dates: start: 20120308, end: 20120905
  2. ENALAPRIL [Suspect]
     Indication: CARDIAC FAILURE
     Dosage: UNK
     Route: 048
     Dates: start: 20120308, end: 20120905
  3. FLUID/ELECTROLYTE REPLACEMENT THERAPY [Suspect]

REACTIONS (2)
  - Cardiac failure chronic [Recovering/Resolving]
  - Retinal artery embolism [Recovered/Resolved with Sequelae]
